FAERS Safety Report 7572948-0 (Version None)
Quarter: 2011Q2

REPORT INFORMATION
  Report Type: 
  Country: None (occurrence: None)
  Receive Date: 20110620
  Receipt Date: 20110609
  Transmission Date: 20111010
  Serious: Yes (Life-Threatening)
  Sender: FDA-Public Use
  Company Number: LEO-2011-00499

PATIENT
  Age: 64 Year
  Sex: Male
  Weight: 105 kg

DRUGS (1)
  1. INNOHEP [Suspect]
     Indication: PRODUCT USED FOR UNKNOWN INDICATION
     Dosage: 0.9  ML, SUBCUTANEOUS
     Route: 058
     Dates: start: 20110121, end: 20110130

REACTIONS (11)
  - DIALYSIS [None]
  - SHOCK HAEMORRHAGIC [None]
  - ACUTE RESPIRATORY DISTRESS SYNDROME [None]
  - ABDOMINAL PAIN [None]
  - HYPOTENSION [None]
  - HYPOVOLAEMIC SHOCK [None]
  - FEBRILE BONE MARROW APLASIA [None]
  - ANAEMIA [None]
  - ATRIAL TACHYCARDIA [None]
  - CELL DEATH [None]
  - ANGIOGRAM [None]
